FAERS Safety Report 15300656 (Version 2)
Quarter: 2018Q3

REPORT INFORMATION
  Report Type: Spontaneous
  Country: US (occurrence: US)
  Receive Date: 20180821
  Receipt Date: 20180821
  Transmission Date: 20181010
  Serious: Yes (Hospitalization)
  Sender: FDA-Public Use
  Company Number: US-BAUSCH-BL-2018-022685

PATIENT
  Age: 90 Year
  Sex: Male
  Weight: 81.72 kg

DRUGS (3)
  1. MYSOLINE [Suspect]
     Active Substance: PRIMIDONE
     Indication: ESSENTIAL TREMOR
     Dosage: COUPLE OF YEARS AGO
     Route: 048
  2. MYSOLINE [Suspect]
     Active Substance: PRIMIDONE
     Route: 048
     Dates: start: 2018
  3. MYSOLINE [Suspect]
     Active Substance: PRIMIDONE
     Route: 048
     Dates: start: 2018, end: 2018

REACTIONS (4)
  - Communication disorder [Not Recovered/Not Resolved]
  - Mood altered [Not Recovered/Not Resolved]
  - Fall [Unknown]
  - Incorrect dose administered [Recovered/Resolved]

NARRATIVE: CASE EVENT DATE: 2018
